FAERS Safety Report 10757798 (Version 1)
Quarter: 2015Q1

REPORT INFORMATION
  Report Type: Spontaneous
  Country: US (occurrence: None)
  Receive Date: 20150202
  Receipt Date: 20150202
  Transmission Date: 20150721
  Serious: Yes (Other)
  Sender: FDA-Public Use
  Company Number: None

PATIENT
  Age: 40 Year
  Sex: Male
  Weight: 86.18 kg

DRUGS (1)
  1. GENERIC ADDERALL XR [Suspect]
     Active Substance: AMPHETAMINE ASPARTATE\AMPHETAMINE SULFATE\DEXTROAMPHETAMINE SACCHARATE\DEXTROAMPHETAMINE SULFATE
     Indication: ATTENTION DEFICIT/HYPERACTIVITY DISORDER
     Dosage: 2 ONCE DAILY TAKEN BY MOUTH
     Route: 048
     Dates: start: 20141101, end: 20141224

REACTIONS (7)
  - Somnolence [None]
  - Product quality issue [None]
  - Disturbance in attention [None]
  - Skin warm [None]
  - Mood altered [None]
  - Product substitution issue [None]
  - Irritability [None]

NARRATIVE: CASE EVENT DATE: 20141001
